FAERS Safety Report 19776784 (Version 8)
Quarter: 2021Q4

REPORT INFORMATION
  Report Type: Spontaneous
  Country: LT (occurrence: LT)
  Receive Date: 20210901
  Receipt Date: 20211008
  Transmission Date: 20220303
  Serious: Yes (Death, Life-Threatening, Hospitalization, Other)
  Sender: FDA-Public Use
  Company Number: LT-SA-SAC20210827001058

PATIENT

DRUGS (6)
  1. LIBTAYO [Suspect]
     Active Substance: CEMIPLIMAB-RWLC
     Indication: Squamous cell carcinoma
     Dosage: 350 MG, Q3W
     Route: 042
     Dates: start: 20210426, end: 20210426
  2. LIBTAYO [Suspect]
     Active Substance: CEMIPLIMAB-RWLC
     Dosage: 350 MG, Q3W
     Route: 042
     Dates: start: 20210607, end: 20210607
  3. VISMODEGIB [Concomitant]
     Active Substance: VISMODEGIB
     Indication: Product used for unknown indication
     Dosage: 23 CYCLES
     Route: 065
     Dates: start: 201710, end: 201907
  4. CISPLATIN [Concomitant]
     Active Substance: CISPLATIN
     Indication: Chemotherapy
     Dosage: 6 CYCLES OF CISPLATIN
     Dates: start: 201907, end: 202001
  5. CISPLATIN [Concomitant]
     Active Substance: CISPLATIN
     Dosage: UNK
     Dates: start: 20190805
  6. MEGESTROL [Concomitant]
     Active Substance: MEGESTROL
     Indication: Product used for unknown indication
     Dosage: UNK

REACTIONS (30)
  - Basal cell carcinoma [Fatal]
  - Cachexia [Fatal]
  - Embolism [Fatal]
  - Osteomyelitis [Fatal]
  - Loss of consciousness [Fatal]
  - Hypokalaemia [Fatal]
  - Shock [Fatal]
  - Hypoxia [Fatal]
  - Respiratory failure [Fatal]
  - Chest pain [Fatal]
  - Dyspnoea [Fatal]
  - Heart rate irregular [Fatal]
  - Hypoaesthesia [Fatal]
  - Hyponatraemia [Fatal]
  - Leukocytosis [Fatal]
  - Hypotension [Fatal]
  - Dizziness [Fatal]
  - Acidosis [Fatal]
  - Normocytic anaemia [Fatal]
  - Asthenia [Fatal]
  - Infection [Fatal]
  - Osteonecrosis of jaw [Unknown]
  - Metastases to lung [Fatal]
  - Dyspepsia [Fatal]
  - Head and neck cancer [Fatal]
  - Disease progression [Fatal]
  - Dysphonia [Unknown]
  - Fatigue [Unknown]
  - Weight decreased [Unknown]
  - Decreased appetite [Unknown]

NARRATIVE: CASE EVENT DATE: 20210710
